FAERS Safety Report 5360428-2 (Version None)
Quarter: 2007Q2

REPORT INFORMATION
  Report Type: 
  Country: None (occurrence: None)
  Receive Date: 20070618
  Receipt Date: 20060710
  Transmission Date: 20071010
  Serious: Yes (Other)
  Sender: FDA-Public Use
  Company Number: DE-AVENTIS-200612039DE

PATIENT
  Age: 50 Year
  Sex: Male

DRUGS (3)
  1. TRENTAL INFUSIONSLOESUNG [Suspect]
     Indication: TINNITUS
     Route: 042
  2. CORTISONE ACETATE [Concomitant]
  3. HAES [Concomitant]
     Route: 041

REACTIONS (1)
  - MACULAR OEDEMA [None]
